FAERS Safety Report 14125351 (Version 9)
Quarter: 2019Q2

REPORT INFORMATION
  Report Type: Report from Study
  Country: CA (occurrence: CA)
  Receive Date: 20171025
  Receipt Date: 20190415
  Transmission Date: 20190711
  Serious: Yes (Hospitalization, Other)
  Sender: FDA-Public Use
  Company Number: PHHY2016CA120281

PATIENT
  Age: 1 Year
  Sex: Female

DRUGS (10)
  1. EXJADE [Suspect]
     Active Substance: DEFERASIROX
     Dosage: 375 MG, QD
     Route: 048
     Dates: start: 201607
  2. EXJADE [Suspect]
     Active Substance: DEFERASIROX
     Indication: CONGENITAL APLASTIC ANAEMIA
     Dosage: 250 MG, QD
     Route: 048
     Dates: start: 201607
  3. DESFERAL [Suspect]
     Active Substance: DEFEROXAMINE MESYLATE
     Dosage: 5 NIGHTSXWEEK
     Route: 042
  4. DESFERAL [Suspect]
     Active Substance: DEFEROXAMINE MESYLATE
     Dosage: 450 MG, (1ML/H)
     Route: 042
  5. JADENU [Suspect]
     Active Substance: DEFERASIROX
     Dosage: 405 MG, 5 DAYS PER WEEK
     Route: 048
  6. EXJADE [Suspect]
     Active Substance: DEFERASIROX
     Dosage: 500MG QD DOSE ONCE PER DAY ALTERNATING WITH 375MG QD DOSE THE NEXT DAY
     Route: 048
     Dates: start: 20160719, end: 201709
  7. DESFERAL [Suspect]
     Active Substance: DEFEROXAMINE MESYLATE
     Indication: CONGENITAL APLASTIC ANAEMIA
     Dosage: UNK
     Route: 065
  8. DESFERAL [Suspect]
     Active Substance: DEFEROXAMINE MESYLATE
     Dosage: FOR 11 HOURS OVERNIGHT
     Route: 042
  9. JADENU [Suspect]
     Active Substance: DEFERASIROX
     Dosage: 405 MG, QD (ONE 360 MG TABLET AND 90 MG TABLET)
     Route: 048
     Dates: start: 20170901
  10. JADENU [Suspect]
     Active Substance: DEFERASIROX
     Indication: IRON OVERLOAD
     Dosage: 360 MG, QD
     Route: 048

REACTIONS (16)
  - Thirst [Unknown]
  - Crying [Unknown]
  - Pyrexia [Recovered/Resolved]
  - Diarrhoea [Unknown]
  - Seizure [Not Recovered/Not Resolved]
  - Increased viscosity of upper respiratory secretion [Unknown]
  - Chromaturia [Unknown]
  - Drug hypersensitivity [Unknown]
  - Viral infection [Unknown]
  - Sinusitis [Unknown]
  - Malaise [Unknown]
  - Cough [Recovered/Resolved]
  - Eating disorder [Unknown]
  - Drug ineffective [Unknown]
  - Product quality issue [Unknown]
  - Vomiting [Unknown]

NARRATIVE: CASE EVENT DATE: 201612
